FAERS Safety Report 9498382 (Version 1)
Quarter: 2013Q3

REPORT INFORMATION
  Report Type: Spontaneous
  Country: US (occurrence: None)
  Receive Date: 20130903
  Receipt Date: 20130903
  Transmission Date: 20140515
  Serious: Yes (Hospitalization)
  Sender: FDA-Public Use
  Company Number: None

PATIENT
  Age: 29 Year
  Sex: Female

DRUGS (2)
  1. COVIDIEN MONOJECT PREFILL FLUSH [Suspect]
     Indication: CATHETER MANAGEMENT
     Dates: start: 20130806
  2. ALBUTEROL HFA [Concomitant]

REACTIONS (3)
  - Staphylococcal sepsis [None]
  - Acinetobacter bacteraemia [None]
  - Device related sepsis [None]
